FAERS Safety Report 25746825 (Version 1)
Quarter: 2025Q3

REPORT INFORMATION
  Report Type: Report from Study
  Country: JP (occurrence: JP)
  Receive Date: 20250901
  Receipt Date: 20250901
  Transmission Date: 20251021
  Serious: Yes (Other)
  Sender: Haleon PLC
  Company Number: JP-HALEON-2187673

PATIENT
  Age: 49 Year
  Sex: Female
  Weight: 69.2 kg

DRUGS (2)
  1. ALLI [Suspect]
     Active Substance: ORLISTAT
     Indication: Product used for unknown indication
     Dosage: TIMING OF TAKING: DURING MEALS TO WITHIN 1 HOUR AFTER MEALS
     Route: 048
     Dates: start: 20240607, end: 20241107
  2. LEVOFLOXACIN [Concomitant]
     Active Substance: LEVOFLOXACIN
     Indication: Infection prophylaxis
     Route: 048

REACTIONS (2)
  - Internal haemorrhage [Unknown]
  - Haematuria [Recovered/Resolved]

NARRATIVE: CASE EVENT DATE: 20240710
